FAERS Safety Report 5295807-5 (Version None)
Quarter: 2007Q2

REPORT INFORMATION
  Report Type: 
  Country: None (occurrence: None)
  Receive Date: 20070413
  Receipt Date: 20070410
  Transmission Date: 20071010
  Serious: Yes (Other)
  Sender: FDA-Public Use
  Company Number: JP-BRISTOL-MYERS SQUIBB COMPANY-13743760

PATIENT
  Age: 61 Year
  Sex: Female

DRUGS (4)
  1. CISPLATIN [Suspect]
     Indication: MALIGNANT MELANOMA
  2. DACARBAZINE [Suspect]
     Indication: MALIGNANT MELANOMA
  3. NIMUSTINE [Suspect]
     Indication: MALIGNANT MELANOMA
  4. TAMOXIFEN [Suspect]
     Indication: MALIGNANT MELANOMA

REACTIONS (2)
  - ACUTE MYOCARDIAL INFARCTION [None]
  - HYPERTRIGLYCERIDAEMIA [None]
